FAERS Safety Report 22288001 (Version 5)
Quarter: 2023Q4

REPORT INFORMATION
  Report Type: Report from Study
  Country: US (occurrence: US)
  Receive Date: 20230505
  Receipt Date: 20231025
  Transmission Date: 20240110
  Serious: No
  Sender: FDA-Public Use
  Company Number: US-IDORSIA-004878-2023-US

PATIENT
  Sex: Female
  Weight: 70.295 kg

DRUGS (2)
  1. QUVIVIQ [Suspect]
     Active Substance: DARIDOREXANT
     Indication: Insomnia
     Dosage: 25 MG, QD
     Route: 048
     Dates: start: 20230404, end: 20230427
  2. QUVIVIQ [Suspect]
     Active Substance: DARIDOREXANT
     Dosage: 50 MG, QD
     Route: 048
     Dates: start: 202306

REACTIONS (7)
  - Tremor [Recovered/Resolved]
  - Memory impairment [Recovered/Resolved]
  - Nightmare [Recovered/Resolved]
  - Screaming [Recovered/Resolved]
  - Labelled drug-food interaction issue [Recovered/Resolved]
  - Sleep terror [Recovered/Resolved]
  - Drug ineffective [Recovered/Resolved]
